FAERS Safety Report 18943175 (Version 1)
Quarter: 2021Q1

REPORT INFORMATION
  Report Type: Spontaneous
  Country: FR (occurrence: FR)
  Receive Date: 20210226
  Receipt Date: 20210226
  Transmission Date: 20210420
  Serious: Yes (Other)
  Sender: FDA-Public Use
  Company Number: FR-TEVA-2021-FR-1883383

PATIENT
  Age: 72 Year
  Sex: Male
  Weight: 120 kg

DRUGS (6)
  1. IRINOTECAN [Concomitant]
     Active Substance: IRINOTECAN
     Indication: ADENOCARCINOMA OF COLON
     Dosage: 250 MG
     Route: 042
     Dates: start: 20201110, end: 20201222
  2. IRINOTECAN [Concomitant]
     Active Substance: IRINOTECAN
     Dosage: 360 MG
     Route: 041
     Dates: start: 20200330, end: 20200720
  3. VECTIBIX [Concomitant]
     Active Substance: PANITUMUMAB
     Indication: ADENOCARCINOMA OF COLON
     Dosage: 400 MG
     Route: 042
     Dates: start: 20201110, end: 20201222
  4. VECTIBIX [Concomitant]
     Active Substance: PANITUMUMAB
     Dosage: 440 MG
     Route: 042
     Dates: start: 20190114, end: 20201010
  5. FLUOROURACILE [Suspect]
     Active Substance: FLUOROURACIL
     Indication: ADENOCARCINOMA OF COLON
     Dosage: 4800 MG
     Route: 042
     Dates: start: 20190114, end: 20201222
  6. IRINOTECAN [Concomitant]
     Active Substance: IRINOTECAN
     Route: 042
     Dates: start: 20190114, end: 201906

REACTIONS (1)
  - Cardiac failure [Not Recovered/Not Resolved]

NARRATIVE: CASE EVENT DATE: 202011
